FAERS Safety Report 7693242-3 (Version None)
Quarter: 2011Q3

REPORT INFORMATION
  Report Type: 
  Country: None (occurrence: None)
  Receive Date: 20110819
  Receipt Date: 20110809
  Transmission Date: 20111222
  Serious: Yes (Other)
  Sender: FDA-Public Use
  Company Number: US-JNJFOC-20110805388

PATIENT
  Sex: Male

DRUGS (5)
  1. CONCERTA [Suspect]
     Indication: ATTENTION DEFICIT/HYPERACTIVITY DISORDER
     Route: 048
     Dates: start: 20071201
  2. CONCERTA [Suspect]
     Route: 048
     Dates: start: 20060101, end: 20070701
  3. STRATTERA [Suspect]
     Indication: ATTENTION DEFICIT/HYPERACTIVITY DISORDER
     Route: 048
     Dates: start: 20070301, end: 20070701
  4. CONCERTA [Suspect]
     Route: 048
     Dates: start: 20071201, end: 20071201
  5. RITALIN [Suspect]
     Indication: ATTENTION DEFICIT/HYPERACTIVITY DISORDER
     Route: 048
     Dates: start: 20101101

REACTIONS (16)
  - MALAISE [None]
  - ARTHRALGIA [None]
  - ASTHENIA [None]
  - BLOOD ALKALINE PHOSPHATASE INCREASED [None]
  - PYREXIA [None]
  - GENERAL SYMPTOM [None]
  - DEPRESSION [None]
  - DRUG INEFFECTIVE [None]
  - PAIN [None]
  - IMMUNOSUPPRESSION [None]
  - BLOOD THYROID STIMULATING HORMONE INCREASED [None]
  - ABDOMINAL PAIN UPPER [None]
  - FATIGUE [None]
  - FEELING ABNORMAL [None]
  - HEPATIC ENZYME INCREASED [None]
  - BONE PAIN [None]
